FAERS Safety Report 18033742 (Version 1)
Quarter: 2020Q3

REPORT INFORMATION
  Report Type: Report from Study
  Country: HK (occurrence: HK)
  Receive Date: 20200716
  Receipt Date: 20200716
  Transmission Date: 20201103
  Serious: Yes (Hospitalization)
  Sender: FDA-Public Use
  Company Number: HK-PFIZER INC-2020125689

PATIENT
  Age: 71 Year
  Sex: Male
  Weight: 56 kg

DRUGS (13)
  1. BECLOMETHASONE DIPROPIONATE [BECLOMETASONE DIPROPIONATE] [Concomitant]
     Active Substance: BECLOMETHASONE DIPROPIONATE
     Dosage: 500 UG
     Route: 055
  2. TERBUTALINE SULFATE. [Concomitant]
     Active Substance: TERBUTALINE SULFATE
     Dosage: 5 MG
     Route: 048
  3. HYDROCORTISONE ACETATE. [Concomitant]
     Active Substance: HYDROCORTISONE ACETATE
     Dosage: ON AFFECTED AREAS TWICE A DAY
     Route: 061
     Dates: start: 20200218
  4. DIPHENHYDRAMINE HCL [Concomitant]
     Active Substance: DIPHENHYDRAMINE HYDROCHLORIDE
     Dosage: 1 ML ONCE DAILY (50 MG/ML PARENTERALLY)
     Dates: start: 20200218
  5. OSELTAMIVIR [Concomitant]
     Active Substance: OSELTAMIVIR
     Dosage: 75 MG, 2X/DAY (1 IN 0.5 DAY)
     Route: 048
     Dates: start: 20200311, end: 20200314
  6. AVELUMAB [Suspect]
     Active Substance: AVELUMAB
     Indication: HEPATOCELLULAR CARCINOMA
     Dosage: 540 MG (IN 250 ML NORMAL SALINE TRANSFUSED OVER ONE HOUR), CYCLIC
     Route: 042
     Dates: start: 20190729
  7. METOCLOPRAMIDE. [Concomitant]
     Active Substance: METOCLOPRAMIDE
     Dosage: 10 MG (1 IN 0.7 DAY) (3 TIMES A DAY OR AS REQUIRED 30 MINUTES BEFORE THE MEAL)
     Route: 048
     Dates: start: 20200307, end: 20200309
  8. AVELUMAB [Suspect]
     Active Substance: AVELUMAB
     Dosage: 540 MG, CYCLIC
     Route: 042
     Dates: start: 20200303
  9. LOSARTAN POTASSIUM. [Suspect]
     Active Substance: LOSARTAN POTASSIUM
     Indication: HYPERTENSION
     Dosage: 50 MG
     Route: 048
  10. PIPERACILLIN AND TAZOBACTAM [Concomitant]
     Active Substance: PIPERACILLIN SODIUM\TAZOBACTAM SODIUM
     Dosage: 3 VIALS
  11. AMLODIPINE BESILATE [Suspect]
     Active Substance: AMLODIPINE BESYLATE
     Indication: HYPERTENSION
     Dosage: 5 MG, 1X/DAY
     Route: 048
  12. SALBUTAMOL [Concomitant]
     Active Substance: ALBUTEROL
     Dosage: 100 UG
     Route: 055
  13. SIMVASTATIN. [Concomitant]
     Active Substance: SIMVASTATIN
     Dosage: 20 MG
     Route: 048

REACTIONS (2)
  - Pyrexia [Recovered/Resolved]
  - Syncope [Recovered/Resolved]

NARRATIVE: CASE EVENT DATE: 20200309
